FAERS Safety Report 13331031 (Version 2)
Quarter: 2017Q2

REPORT INFORMATION
  Report Type: Report from Study
  Country: FI (occurrence: FI)
  Receive Date: 20170313
  Receipt Date: 20170406
  Transmission Date: 20170830
  Serious: Yes (Hospitalization)
  Sender: FDA-Public Use
  Company Number: FI-CELGENEUS-FIN-2017029464

PATIENT
  Age: 71 Year
  Sex: Male

DRUGS (9)
  1. IBRUTINIB [Suspect]
     Active Substance: IBRUTINIB
     Dosage: 560 MILLIGRAM
     Route: 065
     Dates: start: 20161214, end: 20170226
  2. REVLIMID [Suspect]
     Active Substance: LENALIDOMIDE
     Dosage: 10+5MG
     Route: 048
     Dates: start: 20170117, end: 20170206
  3. VALAVIR [Concomitant]
     Indication: HERPES SIMPLEX
     Dosage: 500 MILLIGRAM
     Route: 065
     Dates: start: 20160217
  4. REVLIMID [Suspect]
     Active Substance: LENALIDOMIDE
     Indication: MANTLE CELL LYMPHOMA
     Dosage: 10+5MG
     Route: 048
     Dates: start: 20160210
  5. IBRUTINIB [Suspect]
     Active Substance: IBRUTINIB
     Indication: MANTLE CELL LYMPHOMA
     Dosage: 560 MILLIGRAM
     Route: 065
     Dates: start: 20160210
  6. RITUXIMAB [Suspect]
     Active Substance: RITUXIMAB
     Indication: MANTLE CELL LYMPHOMA
     Route: 058
     Dates: start: 20160210
  7. RITUXIMAB [Suspect]
     Active Substance: RITUXIMAB
     Route: 058
     Dates: start: 20170214
  8. NEBUPENTIN [Concomitant]
     Indication: PROPHYLAXIS
     Route: 065
  9. PENTAMIDINE [Concomitant]
     Active Substance: PENTAMIDINE
     Indication: PROPHYLAXIS
     Route: 055
     Dates: start: 20160302

REACTIONS (1)
  - Cerebral haemorrhage [Recovering/Resolving]

NARRATIVE: CASE EVENT DATE: 20170226
